FAERS Safety Report 5002779-7 (Version None)
Quarter: 2006Q2

REPORT INFORMATION
  Report Type: 
  Country: None (occurrence: None)
  Receive Date: 20060516
  Receipt Date: 20060508
  Transmission Date: 20061013
  Serious: Yes (Death)
  Sender: FDA-Public Use
  Company Number: FR-JNJFOC-20060501594

PATIENT
  Age: 68 Year
  Sex: Male

DRUGS (6)
  1. OFLOCET [Suspect]
     Indication: BRONCHITIS
     Route: 048
     Dates: start: 20060214, end: 20060214
  2. AUGMENTIN '125' [Suspect]
     Route: 048
     Dates: start: 20060214, end: 20060214
  3. AUGMENTIN '125' [Suspect]
     Indication: BRONCHITIS
     Route: 048
     Dates: start: 20060214, end: 20060214
  4. CIFLOX [Suspect]
     Indication: BRONCHITIS
     Route: 042
     Dates: start: 20060214, end: 20060215
  5. CLAMOXYL [Suspect]
     Indication: BRONCHITIS
     Route: 042
     Dates: start: 20060214, end: 20060215
  6. PYOSTACINE [Concomitant]
     Route: 065

REACTIONS (4)
  - BRONCHITIS [None]
  - PSEUDOMONAL SEPSIS [None]
  - SUPERINFECTION [None]
  - TOXIC EPIDERMAL NECROLYSIS [None]
